FAERS Safety Report 4344704-8 (Version None)
Quarter: 2004Q2

REPORT INFORMATION
  Report Type: 
  Country: None (occurrence: None)
  Receive Date: 20040420
  Receipt Date: 20040405
  Transmission Date: 20050107
  Serious: Yes (Other)
  Sender: FDA-Public Use
  Company Number: 2004208232GB

PATIENT
  Age: 76 Year
  Sex: Female

DRUGS (10)
  1. BEXTRA [Suspect]
     Indication: LOCALISED OSTEOARTHRITIS
     Dosage: 20 MG, ORAL
     Route: 048
     Dates: start: 20040308, end: 20040311
  2. ALENDRONATE SODIUM [Concomitant]
  3. TRAMADOL HCL [Concomitant]
  4. LOSARTAN POTASSIUM [Concomitant]
  5. CITALOPRAM [Concomitant]
  6. BENDROFLUAZIDE [Concomitant]
  7. CELIPROLOL [Concomitant]
  8. THYROXIN (LEVOTHYROXINE SODIUM) [Concomitant]
  9. ADALAT - SLOW RELEASE [Concomitant]
  10. ASPIRIN [Concomitant]

REACTIONS (4)
  - CHROMATURIA [None]
  - FAECES PALE [None]
  - JAUNDICE [None]
  - LIVER FUNCTION TEST ABNORMAL [None]
